FAERS Safety Report 22843960 (Version 2)
Quarter: 2023Q4

REPORT INFORMATION
  Report Type: Spontaneous
  Country: AR (occurrence: AR)
  Receive Date: 20230821
  Receipt Date: 20231106
  Transmission Date: 20240110
  Serious: No
  Sender: FDA-Public Use
  Company Number: AR-PFIZER INC-PV202300129031

PATIENT
  Age: 79 Year
  Sex: Female

DRUGS (1)
  1. SOMAVERT [Suspect]
     Active Substance: PEGVISOMANT
     Indication: Acromegaly
     Dosage: 15 MG, 4 TIMES PER WEEK
     Dates: start: 20160902

REACTIONS (4)
  - Mental disorder [Unknown]
  - Nervousness [Unknown]
  - Anxiety [Unknown]
  - Off label use [Unknown]
